FAERS Safety Report 7309019-4 (Version None)
Quarter: 2011Q1

REPORT INFORMATION
  Report Type: 
  Country: None (occurrence: None)
  Receive Date: 20110223
  Receipt Date: 20110208
  Transmission Date: 20110831
  Serious: Yes (Hospitalization, Other)
  Sender: FDA-Public Use
  Company Number: US-BAYER-201035477NA

PATIENT
  Sex: Female
  Weight: 126.98 kg

DRUGS (7)
  1. GLUCOPHAGE [Concomitant]
  2. ZOCOR [Concomitant]
  3. ALEVE-D SINUS + COLD [Concomitant]
     Dosage: UNK
     Dates: start: 20050101
  4. ADVIL LIQUI-GELS [Concomitant]
     Dosage: UNK
     Dates: start: 20050101
  5. YAZ [Suspect]
     Indication: PRODUCT USED FOR UNKNOWN INDICATION
     Dosage: UNK
     Dates: start: 20040101, end: 20060101
  6. YASMIN [Suspect]
     Indication: PRODUCT USED FOR UNKNOWN INDICATION
     Dosage: UNK
     Dates: start: 20040101, end: 20060101
  7. OCELLA [Suspect]
     Indication: PRODUCT USED FOR UNKNOWN INDICATION
     Dosage: UNK
     Dates: start: 20040101, end: 20060101

REACTIONS (6)
  - CHOLECYSTECTOMY [None]
  - MENTAL DISORDER [None]
  - NAUSEA [None]
  - ABDOMINAL PAIN UPPER [None]
  - CHOLELITHIASIS [None]
  - CHOLECYSTITIS CHRONIC [None]
